FAERS Safety Report 8882439 (Version 2)
Quarter: 2012Q4

REPORT INFORMATION
  Report Type: Report from Study
  Country: CA (occurrence: CA)
  Receive Date: 20121105
  Receipt Date: 20121205
  Transmission Date: 20130627
  Serious: Yes (Other)
  Sender: FDA-Public Use
  Company Number: CA-JNJFOC-20121016868

PATIENT
  Age: 77 Year
  Sex: Female
  Weight: 86.18 kg

DRUGS (3)
  1. SIMPONI [Suspect]
     Indication: RHEUMATOID ARTHRITIS
     Dosage: 0.5 ml
     Route: 058
     Dates: start: 20120917
  2. SIMPONI [Suspect]
     Indication: RHEUMATOID ARTHRITIS
     Dosage: 0.5 ml
     Route: 058
     Dates: start: 20121019
  3. TYLENOL [Concomitant]
     Indication: PAIN

REACTIONS (1)
  - Abdominal pain lower [Unknown]
